FAERS Safety Report 17268422 (Version 6)
Quarter: 2021Q4

REPORT INFORMATION
  Report Type: Spontaneous
  Country: PT (occurrence: PT)
  Receive Date: 20200114
  Receipt Date: 20211025
  Transmission Date: 20220303
  Serious: Yes (Hospitalization, Other)
  Sender: FDA-Public Use
  Company Number: PT-MYLANLABS-2020M1003623

PATIENT
  Age: 42 Year
  Sex: Male

DRUGS (8)
  1. ETORICOXIB [Suspect]
     Active Substance: ETORICOXIB
     Indication: Orthopaedic procedure
     Dosage: 60 MILLIGRAM 8 / 8H
     Route: 048
     Dates: start: 201801
  2. ETORICOXIB [Suspect]
     Active Substance: ETORICOXIB
     Indication: Surgery
     Dosage: 60 MILLIGRAM 8 / 8H
     Route: 065
  3. ETORICOXIB [Suspect]
     Active Substance: ETORICOXIB
     Dosage: 180 MG, QD (60 MILLIGRAM, TID (PER 8 HOURS))
     Route: 048
     Dates: start: 201801
  4. ETORICOXIB [Suspect]
     Active Substance: ETORICOXIB
     Dosage: 60 MILLIGRAM, TID (PER 8 HOURS)
     Route: 065
  5. IBUPROFEN [Suspect]
     Active Substance: IBUPROFEN
     Indication: Orthopaedic procedure
     Dosage: 600 MILLIGRAM
     Route: 048
  6. IBUPROFEN [Suspect]
     Active Substance: IBUPROFEN
     Indication: Self-medication
     Dosage: 600 MILLIGRAM
     Route: 065
  7. ACETAMINOPHEN [Suspect]
     Active Substance: ACETAMINOPHEN
     Indication: Orthopaedic procedure
     Dosage: 1 GRAM
     Route: 048
  8. ACETAMINOPHEN [Suspect]
     Active Substance: ACETAMINOPHEN
     Indication: Self-medication

REACTIONS (12)
  - Tubulointerstitial nephritis [Recovered/Resolved]
  - Haematuria [Recovering/Resolving]
  - Leukocyturia [Recovered/Resolved]
  - Pyrexia [Recovered/Resolved]
  - Hyperhidrosis [Recovering/Resolving]
  - Restlessness [Recovered/Resolved]
  - Chills [Recovered/Resolved]
  - Arthralgia [Recovered/Resolved]
  - Malaise [Recovered/Resolved]
  - Pyelonephritis acute [Recovering/Resolving]
  - Intentional product misuse [Unknown]
  - Viral infection [Unknown]

NARRATIVE: CASE EVENT DATE: 20180201
